FAERS Safety Report 10221889 (Version 1)
Quarter: 2014Q2

REPORT INFORMATION
  Report Type: Report from Study
  Country: GB (occurrence: GB)
  Receive Date: 20140606
  Receipt Date: 20140606
  Transmission Date: 20141212
  Serious: No
  Sender: FDA-Public Use
  Company Number: GB-BIOMARINAP-GB-2013-101921

PATIENT
  Age: 8 Year
  Sex: Female

DRUGS (2)
  1. NAGLAZYME [Suspect]
     Indication: MUCOPOLYSACCHARIDOSIS VI
     Dosage: 1 MG/KG, QW
     Route: 041
     Dates: start: 20060816
  2. NAGLAZYME [Suspect]
     Dosage: 20 MG, QW
     Route: 041
     Dates: start: 20110519

REACTIONS (1)
  - Trigger finger [Recovered/Resolved]
